FAERS Safety Report 7180195-X (Version None)
Quarter: 2010Q4

REPORT INFORMATION
  Report Type: 
  Country: None (occurrence: None)
  Receive Date: 20101221
  Receipt Date: 20100817
  Transmission Date: 20110411
  Serious: Yes (Hospitalization)
  Sender: FDA-Public Use
  Company Number: US-BAYER-201011508NA

PATIENT
  Sex: Female
  Weight: 99.2 kg

DRUGS (7)
  1. YAZ [Suspect]
     Indication: ACNE
     Dosage: UNK UNK, QD
     Route: 048
     Dates: start: 20070801, end: 20080101
  2. YAZ [Suspect]
     Indication: MENORRHAGIA
  3. UNCODEABLE ^UNCLASSIFIABLE^ [Concomitant]
     Indication: PAIN MANAGEMENT
  4. NEXIUM [Concomitant]
     Dates: start: 20050901, end: 20080801
  5. MIGRANAL [Concomitant]
     Indication: MIGRAINE
     Route: 045
     Dates: start: 20040801, end: 20081201
  6. MOTRIN [Concomitant]
  7. ADVIL [Concomitant]

REACTIONS (9)
  - DEEP VEIN THROMBOSIS [None]
  - EPISTAXIS [None]
  - GINGIVAL BLEEDING [None]
  - INJECTION SITE HAEMATOMA [None]
  - INJECTION SITE HAEMORRHAGE [None]
  - JOINT ANKYLOSIS [None]
  - PULMONARY EMBOLISM [None]
  - SCAR [None]
  - TENDON OPERATION [None]
